FAERS Safety Report 6715286-8 (Version None)
Quarter: 2010Q2

REPORT INFORMATION
  Report Type: 
  Country: None (occurrence: None)
  Receive Date: 20100507
  Receipt Date: 20100502
  Transmission Date: 20101027
  Serious: Yes (Hospitalization)
  Sender: FDA-Public Use
  Company Number: US-JNJCH-2010010646

PATIENT
  Age: 3 Year
  Sex: Female
  Weight: 15.9 kg

DRUGS (1)
  1. CHILDREN'S ZYRTEC ALLERGY [Suspect]
     Indication: SEASONAL ALLERGY
     Dosage: TEXT:HALF TEASPOONFUL 1X A DAY
     Route: 048
     Dates: start: 20100330, end: 20100330

REACTIONS (2)
  - PRODUCT QUALITY ISSUE [None]
  - UNRESPONSIVE TO STIMULI [None]
